FAERS Safety Report 16931512 (Version 1)
Quarter: 2019Q4

REPORT INFORMATION
  Report Type: Spontaneous
  Country: US (occurrence: US)
  Receive Date: 20191017
  Receipt Date: 20191017
  Transmission Date: 20200122
  Serious: Yes (Life-Threatening, Hospitalization, Disabling, Other)
  Sender: FDA-Public Use
  Company Number: None

PATIENT
  Age: 58 Year
  Sex: Male
  Weight: 83.25 kg

DRUGS (13)
  1. ADDERALL [Suspect]
     Active Substance: AMPHETAMINE ASPARTATE\AMPHETAMINE SULFATE\DEXTROAMPHETAMINE SACCHARATE\DEXTROAMPHETAMINE SULFATE
     Indication: DEPRESSION
  2. PRISTIQ EXTENDED-RELEASE [Concomitant]
     Active Substance: DESVENLAFAXINE SUCCINATE
  3. PROBIOTIC [Concomitant]
     Active Substance: PROBIOTICS NOS
  4. NORCO [Concomitant]
     Active Substance: ACETAMINOPHEN\HYDROCODONE BITARTRATE
  5. RED YEAST [Concomitant]
     Active Substance: YEAST
  6. WELLBUTRIN [Concomitant]
     Active Substance: BUPROPION HYDROCHLORIDE
  7. FISH OIL [Concomitant]
     Active Substance: FISH OIL
  8. BIOTIN [Concomitant]
     Active Substance: BIOTIN
  9. MULTI BITAMINS [Concomitant]
  10. SPRAVATO [Concomitant]
     Active Substance: ESKETAMINE
  11. CLONAZEPAM. [Suspect]
     Active Substance: CLONAZEPAM
     Indication: ANXIETY
     Route: 048
  12. ADDERALL [Suspect]
     Active Substance: AMPHETAMINE ASPARTATE\AMPHETAMINE SULFATE\DEXTROAMPHETAMINE SACCHARATE\DEXTROAMPHETAMINE SULFATE
     Indication: ASTHENIA
  13. AMLODIPINE [Concomitant]
     Active Substance: AMLODIPINE BESYLATE

REACTIONS (16)
  - Anxiety [None]
  - Aggression [None]
  - Vision blurred [None]
  - Amnesia [None]
  - Alcoholism [None]
  - Drug monitoring procedure not performed [None]
  - Drug interaction [None]
  - Loss of consciousness [None]
  - Insomnia [None]
  - Cognitive disorder [None]
  - Depression [None]
  - Irritability [None]
  - Drug dependence [None]
  - Somnolence [None]
  - Mood swings [None]
  - Agitation [None]

NARRATIVE: CASE EVENT DATE: 20191015
